FAERS Safety Report 16758915 (Version 1)
Quarter: 2019Q3

REPORT INFORMATION
  Report Type: Spontaneous
  Country: FR (occurrence: FR)
  Receive Date: 20190830
  Receipt Date: 20190830
  Transmission Date: 20191005
  Serious: Yes (Life-Threatening)
  Sender: FDA-Public Use
  Company Number: FR-ACCORD-153423

PATIENT
  Age: 63 Year
  Sex: Female
  Weight: 70 kg

DRUGS (5)
  1. MOVICOL [Concomitant]
     Active Substance: POLYETHYLENE GLYCOL 3350\POTASSIUM CHLORIDE\SODIUM BICARBONATE\SODIUM CHLORIDE
  2. ARIPIPRAZOLE ACCORD [Suspect]
     Active Substance: ARIPIPRAZOLE
     Indication: ACUTE PSYCHOSIS
     Dosage: STRENGTH: 10 MG
     Route: 048
     Dates: start: 20190725, end: 20190804
  3. SERESTA [Suspect]
     Active Substance: OXAZEPAM
     Indication: ANXIETY
     Dosage: STRENGTH: 50 MG, SCORED TABLET
     Route: 048
     Dates: start: 201903, end: 20190804
  4. ZOPICLONE ARROW [Suspect]
     Active Substance: ZOPICLONE
     Indication: INSOMNIA
     Dosage: STRENGTH: 7.5 MG
     Route: 048
     Dates: start: 20190725, end: 20190804
  5. TERCIAN [Suspect]
     Active Substance: CYAMEMAZINE
     Indication: ACUTE PSYCHOSIS
     Dosage: STRENGTH: 25 MG, SCORED FILM-COATED TABLET
     Route: 048
     Dates: start: 20190725, end: 20190804

REACTIONS (3)
  - Colitis ischaemic [Recovered/Resolved with Sequelae]
  - Large intestinal obstruction [Recovered/Resolved with Sequelae]
  - Faecaloma [Recovered/Resolved with Sequelae]

NARRATIVE: CASE EVENT DATE: 20190804
